FAERS Safety Report 24670478 (Version 1)
Quarter: 2024Q4

REPORT INFORMATION
  Report Type: Spontaneous
  Country: CN (occurrence: CN)
  Receive Date: 20241127
  Receipt Date: 20241127
  Transmission Date: 20250115
  Serious: Yes (Hospitalization)
  Sender: ROCHE
  Company Number: CN-ROCHE-10000140771

PATIENT
  Age: 53 Year
  Sex: Male

DRUGS (5)
  1. RITUXIMAB [Suspect]
     Active Substance: RITUXIMAB
     Indication: Non-Hodgkin^s lymphoma
     Dosage: ACCORDING TO DESCRIPTION, THE DOSAGE WAS UPDATED TO 700MG
     Route: 042
     Dates: start: 20240801, end: 20240801
  2. ETOPOSIDE [Suspect]
     Active Substance: ETOPOSIDE
     Indication: Non-Hodgkin^s lymphoma
     Dosage: ACCORDING TO DESCRIPTION, THE THERAPY START DATE WAS UPDATED TO 03 AUG 2024
     Route: 042
     Dates: start: 20240803, end: 20240806
  3. EPIRUBICIN HYDROCHLORIDE [Suspect]
     Active Substance: EPIRUBICIN HYDROCHLORIDE
     Indication: Non-Hodgkin^s lymphoma
     Dosage: ACCORDING TO DESCRIPTION, THE THERAPY START DATE WAS UPDATED TO 03 AUG 2024
     Route: 042
     Dates: start: 20240803, end: 20240806
  4. VINCRISTINE SULFATE [Suspect]
     Active Substance: VINCRISTINE SULFATE
     Indication: Non-Hodgkin^s lymphoma
     Dosage: ACCORDING TO DESCRIPTION, THE THERAPY START DATE WAS UPDATED TO 03 AUG 2024
     Route: 042
     Dates: start: 20240803, end: 20240806
  5. CYCLOPHOSPHAMIDE [Suspect]
     Active Substance: CYCLOPHOSPHAMIDE
     Indication: Non-Hodgkin^s lymphoma
     Dosage: ACCORDING TO DESCRIPTION, THE THERAPY START DATE WAS UPDATED TO 07 AUG 2024
     Route: 042
     Dates: start: 20240807, end: 20240807

REACTIONS (1)
  - Myelosuppression [Recovering/Resolving]

NARRATIVE: CASE EVENT DATE: 20240812
